FAERS Safety Report 9238692 (Version 3)
Quarter: 2013Q2

REPORT INFORMATION
  Report Type: Spontaneous
  Country: JP (occurrence: JP)
  Receive Date: 20130418
  Receipt Date: 20130627
  Transmission Date: 20140414
  Serious: Yes (Death, Other)
  Sender: FDA-Public Use
  Company Number: PHHY2013JP037284

PATIENT
  Age: 76 Year
  Sex: Male
  Weight: 61 kg

DRUGS (8)
  1. TEGRETOL [Suspect]
     Indication: CEREBRAL INFARCTION
     Dosage: 200 MG, DAILY
     Route: 048
     Dates: start: 20121121, end: 20121128
  2. ARTIST [Concomitant]
     Route: 048
  3. AMLODIPINE [Concomitant]
     Route: 048
  4. RENIVACE [Concomitant]
     Route: 048
  5. EPADEL [Concomitant]
  6. BAYASPIRIN [Concomitant]
     Route: 048
  7. MYSLEE [Concomitant]
     Route: 048
  8. KALIMATE [Concomitant]
     Route: 048

REACTIONS (15)
  - Vanishing bile duct syndrome [Fatal]
  - Cholestasis [Fatal]
  - Liver disorder [Fatal]
  - Jaundice [Fatal]
  - Chromaturia [Fatal]
  - Blood bilirubin increased [Fatal]
  - Hepatorenal syndrome [Fatal]
  - Duodenal ulcer haemorrhage [Unknown]
  - Renal disorder [Unknown]
  - Oliguria [Unknown]
  - Erythema [Recovering/Resolving]
  - Asthenia [Unknown]
  - Altered state of consciousness [Unknown]
  - Malaise [Recovering/Resolving]
  - Pruritus [Recovering/Resolving]
